FAERS Safety Report 9097648 (Version 5)
Quarter: 2013Q1

REPORT INFORMATION
  Report Type: Report from Study
  Country: DE (occurrence: DE)
  Receive Date: 20130212
  Receipt Date: 20130313
  Transmission Date: 20140127
  Serious: Yes (Hospitalization)
  Sender: FDA-Public Use
  Company Number: DE-ROCHE-1189928

PATIENT
  Age: 60 Year
  Sex: Female
  Weight: 96.6 kg

DRUGS (6)
  1. BEVACIZUMAB [Suspect]
     Indication: OVARIAN CANCER
     Route: 042
     Dates: start: 20121217
  2. BEVACIZUMAB [Suspect]
     Dosage: LAST DOSE PRIOR TO SAE ON 25/FEB/2013
     Route: 042
     Dates: start: 20130225
  3. CARBOPLATIN [Suspect]
     Indication: OVARIAN CANCER
     Route: 042
     Dates: start: 20121217
  4. CARBOPLATIN [Suspect]
     Dosage: LAST DOSE PRIOR TO SAE ON 25/FEB/2013
     Route: 042
     Dates: start: 20130225
  5. PACLITAXEL [Suspect]
     Indication: OVARIAN CANCER
     Route: 042
     Dates: start: 20121217
  6. PACLITAXEL [Suspect]
     Dosage: LAST DOSE PRIOR TO SAE ON 25/FEB/2013
     Route: 042

REACTIONS (1)
  - Febrile neutropenia [Recovered/Resolved]
